FAERS Safety Report 4318143-X (Version None)
Quarter: 2004Q1

REPORT INFORMATION
  Report Type: 
  Country: None (occurrence: None)
  Receive Date: 20040317
  Receipt Date: 20040312
  Transmission Date: 20041129
  Serious: Yes (Hospitalization)
  Sender: FDA-Public Use
  Company Number: US-GLAXOSMITHKLINE-A0502639A

PATIENT
  Age: 58 Year
  Sex: Male
  Weight: 61 kg

DRUGS (4)
  1. AUGMENTIN [Suspect]
     Indication: SINUSITIS
  2. PSEUDOEPHEDRINE HCL [Suspect]
     Indication: SINUSITIS
  3. MYCOPHENOLATE MOFETIL [Suspect]
     Indication: RENAL TRANSPLANT
     Dates: start: 19990824, end: 20010424
  4. MYCOPHENOLATE [Suspect]
     Indication: RENAL TRANSPLANT
     Dosage: 1G TWICE PER DAY
     Route: 048
     Dates: start: 20010425

REACTIONS (1)
  - ANURIA [None]
